FAERS Safety Report 21245407 (Version 1)
Quarter: 2022Q3

REPORT INFORMATION
  Report Type: Spontaneous
  Country: US (occurrence: US)
  Receive Date: 20220824
  Receipt Date: 20220824
  Transmission Date: 20221027
  Serious: Yes (Other)
  Sender: FDA-Public Use
  Company Number: US-SUN PHARMACEUTICAL INDUSTRIES LTD-2022R1-349406

PATIENT
  Sex: Male

DRUGS (1)
  1. BROMSITE [Suspect]
     Active Substance: BROMFENAC SODIUM
     Indication: Macular hole
     Dosage: UNK, ONE DROP
     Route: 047
     Dates: start: 2022

REACTIONS (6)
  - Macular hole [Unknown]
  - Off label use [Unknown]
  - Product physical issue [Unknown]
  - Product dose confusion [Unknown]
  - Incorrect dose administered [Unknown]
  - Product packaging issue [Unknown]

NARRATIVE: CASE EVENT DATE: 20220101
